FAERS Safety Report 5491629-0 (Version None)
Quarter: 2007Q4

REPORT INFORMATION
  Report Type: 
  Country: None (occurrence: None)
  Receive Date: 20071017
  Receipt Date: 20071017
  Transmission Date: 20080405
  Serious: Yes (Hospitalization)
  Sender: FDA-Public Use
  Company Number: None

PATIENT
  Age: 20 Month

DRUGS (1)
  1. AMOXICILLIN [Suspect]
     Indication: OTITIS MEDIA
     Dosage: 3/4 TSP TID PO
     Route: 048
     Dates: start: 20070827, end: 20070901

REACTIONS (2)
  - HAEMATOCHEZIA [None]
  - RASH PAPULAR [None]
